FAERS Safety Report 9323869 (Version 3)
Quarter: 2013Q3

REPORT INFORMATION
  Report Type: Spontaneous
  Country: JP (occurrence: JP)
  Receive Date: 20130603
  Receipt Date: 20130917
  Transmission Date: 20140515
  Serious: Yes (Disabling, Other)
  Sender: FDA-Public Use
  Company Number: JP-ASTELLAS-2013US005774

PATIENT
  Sex: Female

DRUGS (11)
  1. AMBISOME [Suspect]
     Indication: FUSARIUM INFECTION
     Dosage: 3 MG/KG, UID/QD
     Route: 041
     Dates: start: 20130412, end: 20130509
  2. AMBISOME [Suspect]
     Dosage: 5 MG/KG, UID/QD
     Route: 041
     Dates: start: 20121116, end: 20121216
  3. AMBISOME [Suspect]
     Dosage: 3 MG/KG, UID/QD
     Route: 041
     Dates: start: 20121117, end: 20130117
  4. AMBISOME [Suspect]
     Dosage: 5 MG/KG, UID/QD
     Route: 041
     Dates: start: 20130118, end: 20130214
  5. AMBISOME [Suspect]
     Dosage: 3 MG/KG, UID/QD
     Route: 041
     Dates: start: 20130215, end: 20130330
  6. AMBISOME [Suspect]
     Dosage: 5 MG/KG, UID/QD
     Route: 041
     Dates: start: 20130331, end: 20130407
  7. CICLOSPORIN [Suspect]
     Indication: PRODUCT USED FOR UNKNOWN INDICATION
     Dosage: UNK
     Route: 065
     Dates: start: 201306, end: 201306
  8. ETANERCEPT [Suspect]
     Indication: PRODUCT USED FOR UNKNOWN INDICATION
     Dosage: UNK
     Route: 058
     Dates: start: 201306, end: 201306
  9. PROGRAF [Concomitant]
     Indication: PRODUCT USED FOR UNKNOWN INDICATION
     Dosage: UNK
     Route: 065
     Dates: start: 20130218, end: 20130518
  10. CONCENTRATED RED CELLS [Concomitant]
     Indication: PRODUCT USED FOR UNKNOWN INDICATION
     Dosage: UNK
     Route: 065
     Dates: start: 20121227, end: 20130717
  11. PLATELETS, CONCENTRATED [Concomitant]
     Indication: PRODUCT USED FOR UNKNOWN INDICATION
     Dosage: UNK
     Route: 065
     Dates: start: 20121227, end: 20130717

REACTIONS (1)
  - Encephalopathy [Not Recovered/Not Resolved]
